FAERS Safety Report 7237937-4 (Version None)
Quarter: 2011Q1

REPORT INFORMATION
  Report Type: 
  Country: None (occurrence: None)
  Receive Date: 20110119
  Receipt Date: 20110119
  Transmission Date: 20110831
  Serious: Yes (Life-Threatening, Hospitalization)
  Sender: FDA-Public Use
  Company Number: None

PATIENT
  Age: 62 Year
  Sex: Male
  Weight: 75 kg

DRUGS (2)
  1. FENTANYL [Suspect]
     Indication: PAIN
     Dosage: 200 MCG OTHER
     Route: 048
     Dates: start: 20060213, end: 20110113
  2. FENTANYL [Suspect]
     Indication: PAIN
     Dosage: 75 MCG OTHER
     Route: 050
     Dates: start: 20060213, end: 20110113

REACTIONS (6)
  - MENTAL STATUS CHANGES [None]
  - SEDATION [None]
  - ASPIRATION [None]
  - CONFUSIONAL STATE [None]
  - PYREXIA [None]
  - OVERDOSE [None]
